FAERS Safety Report 14375050 (Version 2)
Quarter: 2018Q1

REPORT INFORMATION
  Report Type: Spontaneous
  Country: US (occurrence: US)
  Receive Date: 20180111
  Receipt Date: 20180215
  Transmission Date: 20180509
  Serious: No
  Sender: FDA-Public Use
  Company Number: US-PFIZER INC-2018012163

PATIENT
  Sex: Female

DRUGS (1)
  1. IBRANCE [Suspect]
     Active Substance: PALBOCICLIB
     Dosage: UNK UNK, CYCLIC (13 DAYS ON RATHER THAN 21)

REACTIONS (3)
  - Intentional product misuse [Unknown]
  - Diarrhoea [Unknown]
  - Neoplasm progression [Unknown]
